FAERS Safety Report 6895483-1 (Version None)
Quarter: 2010Q3

REPORT INFORMATION
  Report Type: 
  Country: None (occurrence: None)
  Receive Date: 20100802
  Receipt Date: 20100720
  Transmission Date: 20110219
  Serious: Yes (Hospitalization, Other)
  Sender: FDA-Public Use
  Company Number: PHEH2009US01429

PATIENT
  Sex: Male
  Weight: 82.54 kg

DRUGS (17)
  1. ZOMETA [Suspect]
     Indication: METASTASES TO BONE
     Dosage: 4 MG, QMO
     Dates: start: 20030601
  2. CASODEX [Concomitant]
     Dosage: 50 MG, QD
     Dates: start: 20030601
  3. DETROL [Concomitant]
     Dosage: 5 MG, QD
  4. ALTACE [Concomitant]
     Dosage: 10 MG, QD
  5. MEGACE [Concomitant]
     Dosage: 40 MG, QD
  6. PRILOSEC [Concomitant]
     Dosage: 20 MG, QD
  7. ASPIRIN [Concomitant]
     Dosage: 81 MG, QD
  8. OXYBUTYNIN HYDROCHLORIDE [Concomitant]
     Dosage: 5 MG, TID
     Route: 048
  9. FLAGYL [Concomitant]
     Dosage: 500 MG, Q8H
     Route: 048
  10. CALTRATE [Concomitant]
     Dosage: 600 MG, QD
     Route: 048
  11. HEPARIN [Concomitant]
     Dosage: 5000 IU, Q8H
     Route: 058
  12. DAKINS [Concomitant]
     Route: 061
  13. LEVOFLOXACIN [Concomitant]
     Dosage: 500 MG, QD
     Route: 048
  14. PHENERGAN [Concomitant]
  15. FAMOTIDINE [Concomitant]
     Dosage: 20 MG, BID
  16. ALBUTEROL [Concomitant]
  17. LISINOPRIL [Concomitant]

REACTIONS (71)
  - ABDOMINAL PAIN UPPER [None]
  - ABSCESS [None]
  - ACTINOMYCOSIS [None]
  - ANAEMIA [None]
  - ANEURYSM [None]
  - AORTIC VALVE INCOMPETENCE [None]
  - ASTHENIA [None]
  - BIOPSY BONE [None]
  - BONE DENSITY DECREASED [None]
  - BONE DISORDER [None]
  - BONE TRIMMING [None]
  - BUNDLE BRANCH BLOCK LEFT [None]
  - CATHETER PLACEMENT [None]
  - CELLULITIS [None]
  - CHEST PAIN [None]
  - CHOLECYSTECTOMY [None]
  - CHOLELITHIASIS [None]
  - COLONIC POLYP [None]
  - CONSTIPATION [None]
  - DECREASED APPETITE [None]
  - DEHYDRATION [None]
  - DERMOID CYST [None]
  - DIARRHOEA [None]
  - DIVERTICULUM INTESTINAL [None]
  - DIZZINESS [None]
  - DRUG INTOLERANCE [None]
  - DYSPHAGIA [None]
  - DYSPNOEA [None]
  - DYSURIA [None]
  - EPIDERMOID CYST EXCISION [None]
  - ERYTHEMA [None]
  - EXOSTOSIS [None]
  - GASTRIC POLYPS [None]
  - GASTRITIS [None]
  - GINGIVAL SWELLING [None]
  - GLOSSODYNIA [None]
  - HAEMATOCHEZIA [None]
  - HAEMATURIA [None]
  - HAEMORRHOIDS [None]
  - HEADACHE [None]
  - HIATUS HERNIA [None]
  - HYPOVOLAEMIA [None]
  - INCISIONAL DRAINAGE [None]
  - JAW LESION EXCISION [None]
  - LEFT ATRIAL DILATATION [None]
  - MASS [None]
  - MITRAL VALVE INCOMPETENCE [None]
  - MOUTH ULCERATION [None]
  - NAUSEA [None]
  - OEDEMA MOUTH [None]
  - OESOPHAGEAL STENOSIS [None]
  - ORAL CAVITY FISTULA [None]
  - ORAL DISCOMFORT [None]
  - ORAL DISORDER [None]
  - ORTHOSTATIC HYPOTENSION [None]
  - OSTEOARTHRITIS [None]
  - OSTEOMYELITIS [None]
  - OSTEONECROSIS OF JAW [None]
  - PAIN IN JAW [None]
  - PALPITATIONS [None]
  - PERIODONTITIS [None]
  - RHINITIS ALLERGIC [None]
  - SINUS DISORDER [None]
  - STREPTOCOCCAL INFECTION [None]
  - SWELLING FACE [None]
  - TOOTH EXTRACTION [None]
  - TOOTH INFECTION [None]
  - URINARY INCONTINENCE [None]
  - VOMITING [None]
  - WEIGHT DECREASED [None]
  - WOUND DEHISCENCE [None]
